FAERS Safety Report 20745338 (Version 1)
Quarter: 2022Q2

REPORT INFORMATION
  Report Type: Spontaneous
  Country: CN (occurrence: CN)
  Receive Date: 20220425
  Receipt Date: 20220425
  Transmission Date: 20220721
  Serious: Yes (Other)
  Sender: FDA-Public Use
  Company Number: CN-BAXTER-2022BAX008956

PATIENT
  Age: 32 Year
  Sex: Female
  Weight: 44 kg

DRUGS (8)
  1. CYCLOPHOSPHAMIDE [Suspect]
     Active Substance: CYCLOPHOSPHAMIDE
     Indication: Breast cancer female
     Dosage: CYCLOPHOSPHAMIDE INJECTION (0.6 G) + 0.9% SODIUM CHLORIDE INJECTION (500 ML)
     Route: 041
     Dates: start: 20220408, end: 20220408
  2. SODIUM CHLORIDE [Suspect]
     Active Substance: SODIUM CHLORIDE
     Indication: Medication dilution
     Dosage: CYCLOPHOSPHAMIDE INJECTION (0.6 G) + 0.9% SODIUM CHLORIDE INJECTION (500 ML)
     Route: 041
     Dates: start: 20220408, end: 20220408
  3. SODIUM CHLORIDE [Suspect]
     Active Substance: SODIUM CHLORIDE
     Dosage: CIMETIDINE (0.2 G) + 0.9% SODIUM CHLORIDE INJECTION (250 ML)
     Route: 041
     Dates: start: 20220408, end: 20220408
  4. DEXTROSE [Suspect]
     Active Substance: DEXTROSE
     Indication: Medication dilution
     Dosage: EPIRUBICIN (90 MG) + 5% GLUCOSE INJECTION (250 ML)
     Route: 041
     Dates: start: 20220408, end: 20220408
  5. DEXTROSE [Suspect]
     Active Substance: DEXTROSE
     Dosage: DOCETAXEL INJECTION (90 MG) + 5% GLUCOSE INJECTION (250 ML)
     Route: 041
     Dates: start: 20220408, end: 20220408
  6. CIMETIDINE [Suspect]
     Active Substance: CIMETIDINE
     Indication: Breast cancer female
     Dosage: CIMETIDINE (0.2 G) + 0.9% SODIUM CHLORIDE INJECTION (250 ML)
     Route: 041
     Dates: start: 20220408, end: 20220408
  7. DOCETAXEL [Suspect]
     Active Substance: DOCETAXEL
     Indication: Breast cancer female
     Dosage: DOCETAXEL INJECTION (90 MG) + 5% GLUCOSE INJECTION (250 ML)
     Route: 041
     Dates: start: 20220408, end: 20220408
  8. EPIRUBICIN HYDROCHLORIDE [Suspect]
     Active Substance: EPIRUBICIN HYDROCHLORIDE
     Indication: Breast cancer female
     Dosage: EPIRUBICIN (90 MG) + 5% GLUCOSE INJECTION (250 ML)
     Route: 041
     Dates: start: 20220408, end: 20220408

REACTIONS (3)
  - Nausea [Recovering/Resolving]
  - Vomiting [Recovering/Resolving]
  - White blood cell count decreased [Recovering/Resolving]

NARRATIVE: CASE EVENT DATE: 20220408
